FAERS Safety Report 7547636-7 (Version None)
Quarter: 2011Q2

REPORT INFORMATION
  Report Type: 
  Country: None (occurrence: None)
  Receive Date: 20110614
  Receipt Date: 20110607
  Transmission Date: 20111010
  Serious: Yes (Other)
  Sender: FDA-Public Use
  Company Number: GB-MERCK-0804GBR00010

PATIENT
  Age: 48 Month
  Sex: Female

DRUGS (2)
  1. [THERAPY UNSPECIFIED] [Concomitant]
     Route: 065
  2. SINGULAIR [Suspect]
     Indication: ASTHMA
     Route: 048
     Dates: start: 20080401

REACTIONS (4)
  - HALLUCINATION [None]
  - SLEEP DISORDER THERAPY [None]
  - SLEEP DISORDER [None]
  - RASH [None]
